FAERS Safety Report 7862565-7 (Version None)
Quarter: 2011Q4

REPORT INFORMATION
  Report Type: 
  Country: None (occurrence: None)
  Receive Date: 20111027
  Receipt Date: 20101109
  Transmission Date: 20120403
  Serious: No
  Sender: FDA-Public Use
  Company Number: US-AMGEN-KDL231639

PATIENT
  Age: 55 Year
  Sex: Female

DRUGS (3)
  1. ENBREL [Suspect]
     Indication: PSORIASIS
     Dates: start: 20050101
  2. ENBREL [Suspect]
     Indication: PSORIATIC ARTHROPATHY
     Dosage: 50 MG, QWK
     Route: 058
     Dates: start: 20040601
  3. ENBREL [Suspect]

REACTIONS (6)
  - BACK PAIN [None]
  - INJECTION SITE ERYTHEMA [None]
  - MUSCULOSKELETAL PAIN [None]
  - INJECTION SITE SWELLING [None]
  - ARTHRALGIA [None]
  - INJECTION SITE WARMTH [None]
